FAERS Safety Report 7671673-5 (Version None)
Quarter: 2011Q3

REPORT INFORMATION
  Report Type: 
  Country: None (occurrence: None)
  Receive Date: 20110809
  Receipt Date: 20110117
  Transmission Date: 20111222
  Serious: No
  Sender: FDA-Public Use
  Company Number: US-BAYER-2011-005962

PATIENT
  Sex: Female

DRUGS (1)
  1. EOVIST [Suspect]
     Dosage: 10 ML, UNK
     Route: 042
     Dates: start: 20100117

REACTIONS (2)
  - PRURITUS [None]
  - URTICARIA [None]
